FAERS Safety Report 8781819 (Version 1)
Quarter: 2012Q4

REPORT INFORMATION
  Report Type: 
  Country: US (occurrence: US)
  Receive Date: 20120913
  Receipt Date: 20120913
  Transmission Date: 20130627
  Serious: Yes (Hospitalization, Other)
  Sender: FDA-Public Use
  Company Number: US-COVIDIEN/TYCO HEALTHCARE/MALLINCKRODT-T201203360

PATIENT
  Age: 37 Year
  Sex: Male

DRUGS (7)
  1. EXALGO EXTENDED RELEASE [Suspect]
     Indication: BACK PAIN
     Dosage: 10 16mg tablets over two days
     Route: 048
     Dates: start: 20120824
  2. OXYCODONE [Concomitant]
     Indication: PAIN
     Dosage: 60 mg, tid
     Route: 048
     Dates: end: 20120823
  3. OXYCODONE / ACETAMINOPHEN [Concomitant]
     Indication: BREAKTHROUGH PAIN
     Dosage: 10/325, one, tid
     Route: 048
  4. SOMA [Concomitant]
     Indication: BACK PAIN
     Dosage: UNK
  5. AMBIEN [Concomitant]
     Indication: INSOMNIA
     Dosage: UNK
  6. EFFEXOR [Concomitant]
     Indication: DEPRESSION
     Dosage: UNK
  7. XANAX [Concomitant]
     Indication: ANXIETY
     Dosage: UNK

REACTIONS (2)
  - Intentional drug misuse [Recovered/Resolved]
  - Drug diversion [Unknown]
